FAERS Safety Report 16040537 (Version 1)
Quarter: 2019Q1

REPORT INFORMATION
  Report Type: Spontaneous
  Country: US (occurrence: US)
  Receive Date: 20190206
  Receipt Date: 20190206
  Transmission Date: 20190418
  Serious: Yes (Hospitalization)
  Sender: FDA-Public Use
  Company Number: None

PATIENT
  Age: 71 Year
  Sex: Male
  Weight: 95.71 kg

DRUGS (2)
  1. DOXAZOSIN [Suspect]
     Active Substance: DOXAZOSIN\DOXAZOSIN MESYLATE
     Indication: HYPERTENSION
     Route: 048
     Dates: start: 20161120, end: 20180820
  2. PROPRANOLOL [Suspect]
     Active Substance: PROPRANOLOL HYDROCHLORIDE
     Indication: HYPERTENSION
     Route: 048
     Dates: start: 20150825, end: 20180820

REACTIONS (1)
  - Syncope [None]

NARRATIVE: CASE EVENT DATE: 20180820
